FAERS Safety Report 20437526 (Version 3)
Quarter: 2022Q1

REPORT INFORMATION
  Report Type: Spontaneous
  Country: AU (occurrence: AU)
  Receive Date: 20220207
  Receipt Date: 20220222
  Transmission Date: 20220423
  Serious: Yes (Hospitalization, Other)
  Sender: FDA-Public Use
  Company Number: AU-MLMSERVICE-20220120-3327052-1

PATIENT
  Age: 61 Year
  Sex: Male

DRUGS (1)
  1. PACLITAXEL [Suspect]
     Active Substance: PACLITAXEL
     Indication: Peripheral artery occlusion
     Dosage: PACLITAXEL COATED BALLOON ANGIOPLASTY
     Route: 013

REACTIONS (2)
  - Vascular pseudoaneurysm [Recovered/Resolved]
  - Off label use [Unknown]
